FAERS Safety Report 21974507 (Version 1)
Quarter: 2023Q1

REPORT INFORMATION
  Report Type: Spontaneous
  Country: GB (occurrence: GB)
  Receive Date: 20230209
  Receipt Date: 20230209
  Transmission Date: 20230418
  Serious: Yes (Other)
  Sender: FDA-Public Use
  Company Number: None

PATIENT
  Age: 66 Year
  Sex: Female

DRUGS (1)
  1. IMATINIB [Suspect]
     Active Substance: IMATINIB
     Indication: Leukaemia
     Dosage: 400 MILLIGRAM DAILY;
     Route: 065

REACTIONS (6)
  - Rash erythematous [Unknown]
  - Eye swelling [Unknown]
  - Swelling face [Unknown]
  - Skin exfoliation [Unknown]
  - Fluid retention [Unknown]
  - Peripheral swelling [Unknown]
